FAERS Safety Report 9770317 (Version 3)
Quarter: 2014Q1

REPORT INFORMATION
  Report Type: Spontaneous
  Country: US (occurrence: US)
  Receive Date: 20131218
  Receipt Date: 20140108
  Transmission Date: 20141002
  Serious: Yes (Death, Other)
  Sender: FDA-Public Use
  Company Number: US-ACTELION-A-NJ2013-91524

PATIENT
  Age: 57 Year
  Sex: Female

DRUGS (4)
  1. TRACLEER [Suspect]
     Indication: PULMONARY ARTERIAL HYPERTENSION
     Dosage: UNK
     Route: 048
     Dates: end: 20131119
  2. REMODULIN [Concomitant]
  3. ADCIRCA [Concomitant]
  4. FUROSEMIDE W/SPIRONOLACTONE [Concomitant]

REACTIONS (4)
  - Cardiogenic shock [Fatal]
  - Right ventricular failure [Fatal]
  - Disease progression [Not Recovered/Not Resolved]
  - Dyspnoea [Unknown]
